FAERS Safety Report 6307640-3 (Version None)
Quarter: 2009Q3

REPORT INFORMATION
  Report Type: 
  Country: None (occurrence: None)
  Receive Date: 20090813
  Receipt Date: 20090801
  Transmission Date: 20100115
  Serious: Yes (Other)
  Sender: FDA-Public Use
  Company Number: AU-ELI_LILLY_AND_COMPANY-AU_050108330

PATIENT
  Sex: Female

DRUGS (1)
  1. STRATTERA [Suspect]
     Indication: ATTENTION DEFICIT/HYPERACTIVITY DISORDER
     Dosage: 10 MG, UNKNOWN
     Dates: start: 20041201

REACTIONS (5)
  - AGITATION [None]
  - ATTENTION-SEEKING BEHAVIOUR [None]
  - DEPRESSIVE SYMPTOM [None]
  - DRUG INEFFECTIVE [None]
  - SUICIDE ATTEMPT [None]
